FAERS Safety Report 4882376-4 (Version None)
Quarter: 2005Q4

REPORT INFORMATION
  Report Type: 
  Country: None (occurrence: None)
  Receive Date: 20051205
  Receipt Date: 20050726
  Transmission Date: 20060501
  Serious: No
  Sender: FDA-Public Use
  Company Number: 2005PV000606

PATIENT
  Age: 62 Year
  Sex: Female
  Weight: 104.3273 kg

DRUGS (10)
  1. BYETTA [Suspect]
     Indication: DIABETES MELLITUS NON-INSULIN-DEPENDENT
     Dosage: 5 MCG;BID;SC
     Route: 058
     Dates: start: 20050721
  2. GLUCOPHAGE [Concomitant]
  3. AMARYL [Concomitant]
  4. AMBIEN [Concomitant]
  5. CELEXA [Concomitant]
  6. ZESTRIL [Concomitant]
  7. HUMULIN N [Concomitant]
  8. HUMULIN R [Concomitant]
  9. PROVIGIL [Concomitant]
  10. CORTISONE ACETATE TAB [Concomitant]

REACTIONS (4)
  - BLOOD GLUCOSE INCREASED [None]
  - DECREASED APPETITE [None]
  - INJECTION SITE PAIN [None]
  - MALAISE [None]
